FAERS Safety Report 4554952-X (Version None)
Quarter: 2004Q4

REPORT INFORMATION
  Report Type: 
  Country: None (occurrence: None)
  Receive Date: 20041222
  Receipt Date: 20041109
  Transmission Date: 20050328
  Serious: No
  Sender: FDA-Public Use
  Company Number: 210281

PATIENT
  Age: 48 Year
  Sex: Female
  Weight: 49.9 kg

DRUGS (6)
  1. AVASTIN [Suspect]
     Indication: COLORECTAL CANCER METASTATIC
     Dosage: 175 MG, Q2W, INTRAVENOUS
     Route: 042
     Dates: start: 20040419
  2. OXALIPLATIN [Concomitant]
  3. FLUOROURACIL [Concomitant]
  4. LEUCOVORIN CALCIUM [Concomitant]
  5. ARANESP [Concomitant]
  6. PROCRIT (EPOETIN ALFA) [Concomitant]

REACTIONS (1)
  - HAEMATURIA [None]
